FAERS Safety Report 4856021-8 (Version None)
Quarter: 2005Q4

REPORT INFORMATION
  Report Type: 
  Country: None (occurrence: None)
  Receive Date: 20051216
  Receipt Date: 20051207
  Transmission Date: 20060501
  Serious: Yes (Hospitalization)
  Sender: FDA-Public Use
  Company Number: US-JNJFOC-20051202578

PATIENT
  Sex: Female
  Weight: 72.58 kg

DRUGS (4)
  1. ULTRAM [Suspect]
     Route: 048
  2. ASPIRIN [Concomitant]
  3. FOSAMAX [Concomitant]
     Indication: OSTEOPOROSIS
  4. FUROSEMIDE [Concomitant]
     Indication: DIURETIC THERAPY

REACTIONS (2)
  - MYOCARDIAL INFARCTION [None]
  - URINARY TRACT INFECTION [None]
